FAERS Safety Report 6119930-8 (Version None)
Quarter: 2009Q1

REPORT INFORMATION
  Report Type: 
  Country: None (occurrence: None)
  Receive Date: 20090316
  Receipt Date: 20090304
  Transmission Date: 20090719
  Serious: Yes (Other)
  Sender: FDA-Public Use
  Company Number: HR-ROCHE-619064

PATIENT
  Age: 25 Year
  Sex: Male

DRUGS (8)
  1. ALL-TRANS-RETINOIC ACID [Suspect]
     Indication: ACUTE PROMYELOCYTIC LEUKAEMIA
     Dosage: INDUCTION THERAPY FOR 34 DAYS AND THEN DURING MARCH AND APRIL, 2 CYCLES OF 45MG/M2/DAY FOR 42 DAYS.
     Route: 048
     Dates: start: 20061101
  2. IDARUBICIN HCL [Suspect]
     Indication: ACUTE PROMYELOCYTIC LEUKAEMIA
     Route: 042
     Dates: start: 20061101
  3. ZIDOVUDINE [Suspect]
     Route: 065
     Dates: start: 20040401, end: 20061101
  4. ZIDOVUDINE [Suspect]
     Route: 065
     Dates: start: 20061228
  5. LAMIVUDINE [Suspect]
     Route: 065
     Dates: start: 20040401, end: 20061101
  6. LAMIVUDINE [Suspect]
     Route: 065
     Dates: start: 20061228
  7. LOPINAVIR AND RITONAVIR [Suspect]
     Route: 065
     Dates: start: 20040401, end: 20061101
  8. LOPINAVIR AND RITONAVIR [Suspect]
     Route: 065
     Dates: start: 20061228

REACTIONS (3)
  - GENERAL PHYSICAL HEALTH DETERIORATION [None]
  - PANCYTOPENIA [None]
  - SEPSIS [None]
